FAERS Safety Report 13463856 (Version 1)
Quarter: 2017Q2

REPORT INFORMATION
  Report Type: Spontaneous
  Country: US (occurrence: US)
  Receive Date: 20170420
  Receipt Date: 20170420
  Transmission Date: 20170830
  Serious: Yes (Hospitalization, Other)
  Sender: FDA-Public Use
  Company Number: US-ROCHE-669815

PATIENT
  Age: 16 Year
  Sex: Male
  Weight: 75.8 kg

DRUGS (1)
  1. ACCUTANE [Suspect]
     Active Substance: ISOTRETINOIN
     Indication: ACNE
     Route: 065
     Dates: start: 19950828, end: 19960122

REACTIONS (6)
  - Colitis [Unknown]
  - Inflammatory bowel disease [Unknown]
  - Colitis ulcerative [Not Recovered/Not Resolved]
  - Dry eye [Unknown]
  - Crohn^s disease [Unknown]
  - Depression [Unknown]

NARRATIVE: CASE EVENT DATE: 19951017
